FAERS Safety Report 8576865 (Version 6)
Quarter: 2013Q1

REPORT INFORMATION
  Report Type: Spontaneous
  Country: DE (occurrence: DE)
  Receive Date: 20120524
  Receipt Date: 20130220
  Transmission Date: 20140127
  Serious: Yes (Death, Hospitalization, Disabling)
  Sender: FDA-Public Use
  Company Number: DE-BIOGENIDEC-2012BI016879

PATIENT
  Age: 45 Year
  Sex: Female
  Weight: 78 kg

DRUGS (14)
  1. TYSABRI [Suspect]
     Indication: SECONDARY PROGRESSIVE MULTIPLE SCLEROSIS
     Route: 042
     Dates: start: 2008, end: 20120519
  2. ZOLOFT [Concomitant]
     Indication: DEPRESSION
     Route: 048
  3. OXAZEPAM [Concomitant]
     Indication: DEPRESSION
     Route: 048
  4. OXAZEPAM [Concomitant]
     Indication: ANXIETY
     Route: 048
  5. OXAZEPAM [Concomitant]
     Indication: DEPRESSION
     Route: 048
  6. OXAZEPAM [Concomitant]
     Indication: ANXIETY
     Route: 048
  7. SERTRALIN [Concomitant]
     Indication: DEPRESSION
     Route: 048
  8. SERTRALIN [Concomitant]
     Indication: ANXIETY
     Route: 048
  9. DOMINAL [Concomitant]
     Indication: DEPRESSION
     Route: 048
  10. DOMINAL [Concomitant]
     Indication: ANXIETY
     Route: 048
  11. NEXIUM [Concomitant]
     Indication: PROPHYLAXIS
     Dates: start: 20120508
  12. METOPROLOL [Concomitant]
     Indication: PRODUCT USED FOR UNKNOWN INDICATION
  13. EMSELEX [Concomitant]
     Indication: PRODUCT USED FOR UNKNOWN INDICATION
  14. ZOPICLONE [Concomitant]
     Indication: PRODUCT USED FOR UNKNOWN INDICATION

REACTIONS (5)
  - Death [Fatal]
  - Progressive multifocal leukoencephalopathy [Unknown]
  - Immune reconstitution inflammatory syndrome [Unknown]
  - Pneumonia [Unknown]
  - Urinary tract infection [Unknown]
